FAERS Safety Report 10450221 (Version 1)
Quarter: 2014Q3

REPORT INFORMATION
  Report Type: Spontaneous
  Country: US (occurrence: None)
  Receive Date: 20140911
  Receipt Date: 20140911
  Transmission Date: 20150326
  Serious: No
  Sender: FDA-Public Use
  Company Number: None

PATIENT
  Age: 59 Year
  Sex: Female

DRUGS (9)
  1. REMICADE INJ [Concomitant]
  2. STRATERA [Concomitant]
  3. IBUPROFEN. [Concomitant]
     Active Substance: IBUPROFEN
  4. MAGNESIUM [Concomitant]
     Active Substance: MAGNESIUM
  5. COPEGUS [Suspect]
     Active Substance: RIBAVIRIN
     Dosage: TAKE 3 TABLETS BY MOTH EVERY MORNING AND 2 TABLETS BY MOUTH EVERY EVENING
  6. SOVALDI [Suspect]
     Active Substance: SOFOSBUVIR
  7. CLOBETASOL [Concomitant]
     Active Substance: CLOBETASOL
  8. MULTIVITAMIN [Concomitant]
     Active Substance: VITAMINS
  9. CALCIUM [Concomitant]
     Active Substance: CALCIUM

REACTIONS (3)
  - Rash [None]
  - Urticaria [None]
  - Pruritus [None]

NARRATIVE: CASE EVENT DATE: 20140827
